FAERS Safety Report 5251889-8 (Version None)
Quarter: 2007Q1

REPORT INFORMATION
  Report Type: 
  Country: None (occurrence: None)
  Receive Date: 20070223
  Receipt Date: 20070213
  Transmission Date: 20070707
  Serious: Yes (Other)
  Sender: FDA-Public Use
  Company Number: 2007SP001102

PATIENT
  Age: 59 Year
  Sex: Male
  Weight: 95 kg

DRUGS (9)
  1. VIRAFERONPEG [Suspect]
     Indication: HEPATITIS C
     Dosage: 150 MCG;
     Dates: start: 20061107, end: 20070104
  2. REBETOL [Suspect]
     Indication: HEPATITIS C
     Dosage: 1200 MG; QD;
     Dates: start: 20061107, end: 20070104
  3. INSULINE [Concomitant]
  4. KARDEGIC [Concomitant]
  5. PERINDOPRIL ERBUMINE [Concomitant]
  6. PLAVIX [Concomitant]
  7. DETENSIEL [Concomitant]
  8. GLUCOPHAGE [Concomitant]
  9. PRAVASTATIN [Concomitant]

REACTIONS (3)
  - ECZEMA [None]
  - PURPURA [None]
  - RASH MACULAR [None]
